FAERS Safety Report 6000229-5 (Version None)
Quarter: 2008Q4

REPORT INFORMATION
  Report Type: 
  Country: None (occurrence: None)
  Receive Date: 20081215
  Receipt Date: 20081204
  Transmission Date: 20090506
  Serious: Yes (Hospitalization)
  Sender: FDA-Public Use
  Company Number: GB-TEVA-181976ISR

PATIENT
  Age: 83 Year
  Sex: Female

DRUGS (2)
  1. MIRTAZAPINE [Suspect]
     Indication: DEPRESSION
     Route: 048
     Dates: start: 20080613, end: 20080914
  2. OMEPRAZOLE [Suspect]
     Indication: GASTRIC ULCER
     Route: 048
     Dates: start: 20070815

REACTIONS (4)
  - CONVULSION [None]
  - FLUID INTAKE RESTRICTION [None]
  - HEADACHE [None]
  - HYPONATRAEMIA [None]
